FAERS Safety Report 4441049-2 (Version None)
Quarter: 2004Q3

REPORT INFORMATION
  Report Type: 
  Country: None (occurrence: None)
  Receive Date: 20040902
  Receipt Date: 20040902
  Transmission Date: 20050211
  Serious: Yes (Death)
  Sender: FDA-Public Use
  Company Number: None

PATIENT
  Sex: Male
  Weight: 59.8748 kg

DRUGS (7)
  1. PLAVIX [Suspect]
     Dosage: 75 MG   QD   ORAL
     Route: 048
  2. LIPITOR [Concomitant]
  3. CELEBREX [Concomitant]
  4. NORCO [Concomitant]
  5. ENALAPRIL [Concomitant]
  6. DDAVP [Concomitant]
  7. COGENTIN [Concomitant]

REACTIONS (1)
  - HAEMORRHAGE INTRACRANIAL [None]
